FAERS Safety Report 8159943-8 (Version None)
Quarter: 2012Q1

REPORT INFORMATION
  Report Type: 
  Country: None (occurrence: None)
  Receive Date: 20120223
  Receipt Date: 20120217
  Transmission Date: 20120608
  Serious: Yes (Hospitalization)
  Sender: FDA-Public Use
  Company Number: US-AMGEN-USASP2011027776

PATIENT
  Sex: Female

DRUGS (5)
  1. CARBOPLATIN [Concomitant]
  2. CALCIUM [Concomitant]
  3. XGEVA [Suspect]
     Indication: METASTASES TO BONE
     Dosage: 120 MG, Q4WK
     Dates: start: 20110518
  4. TAXOTERE [Concomitant]
  5. HERCEPTIN [Concomitant]

REACTIONS (6)
  - MUSCLE CONTRACTIONS INVOLUNTARY [None]
  - HYPOCALCAEMIA [None]
  - HYPOAESTHESIA [None]
  - VOMITING [None]
  - PARAESTHESIA [None]
  - NAUSEA [None]
